FAERS Safety Report 7958160-1 (Version None)
Quarter: 2011Q4

REPORT INFORMATION
  Report Type: 
  Country: None (occurrence: None)
  Receive Date: 20111205
  Receipt Date: 20111130
  Transmission Date: 20120403
  Serious: Yes (Hospitalization)
  Sender: FDA-Public Use
  Company Number: FR-PFIZER INC-2011177509

PATIENT
  Age: 49 Year
  Sex: Male

DRUGS (20)
  1. PANTOPRAZOLE [Suspect]
     Dosage: 40 MG, DAILY
     Route: 042
     Dates: start: 20110623, end: 20110628
  2. ZOLPIDEM [Suspect]
     Dosage: 10 MG, DAILY
     Dates: start: 20110628, end: 20110701
  3. BISOPROLOL FUMARATE [Suspect]
     Dosage: 10 MG, DAILY
     Route: 048
     Dates: start: 20110625, end: 20110712
  4. LOVENOX [Suspect]
     Dosage: 4000 IU, DAILY
     Route: 058
     Dates: start: 20110624, end: 20110630
  5. NEXIUM [Suspect]
     Dosage: 40 MG, DAILY
     Route: 048
     Dates: start: 20110629, end: 20110702
  6. TRAMADOL HCL [Suspect]
     Indication: PAIN
     Dosage: 4 DF, DAILY
     Route: 048
     Dates: start: 20110623, end: 20110624
  7. LANSOPRAZOLE [Suspect]
     Dosage: 10 MG, DAILY
     Route: 048
     Dates: end: 20110621
  8. VITABACT [Suspect]
     Dosage: 12 GTT (2 GTT, 1 IN 4 HR)
     Route: 031
     Dates: start: 20110627, end: 20110710
  9. SULFASALAZINE [Suspect]
     Indication: BURSITIS
     Dosage: 1000 MG, DAILY
     Route: 048
     Dates: end: 20110601
  10. KETOPROFEN [Suspect]
     Dosage: UNK
     Route: 048
     Dates: end: 20110621
  11. PHLOROGLUCINOL/TRIMETHYLPHLOROGLUCINOL [Suspect]
     Dosage: 480 MG (80 MG, 1 IN 4 HR)
     Route: 048
     Dates: start: 20110627, end: 20110629
  12. IMOVANE [Concomitant]
     Dosage: 7.5 MG, UNK
     Route: 048
     Dates: start: 20110702, end: 20110705
  13. CEFTRIAXONE [Suspect]
     Dosage: 1 G, DAILY
     Route: 042
     Dates: start: 20110626, end: 20110630
  14. VITAMIN B COMPLEX TAB [Suspect]
     Dosage: 2 DF, 3X/DAY
     Route: 048
     Dates: start: 20110628, end: 20110712
  15. PIPERACILLIN AND TAZOBACTAM [Concomitant]
     Indication: PYREXIA
     Dosage: 3 DOSAGE FORMS (1 DOSAGE FORMS,4G/500 MG)
     Route: 042
     Dates: start: 20110702, end: 20110710
  16. CIPROFLOXACIN [Concomitant]
     Indication: PYREXIA
     Dosage: 2 DOSAGE FORMS (1 DOSAGE FORMS,2 IN 1 D)
     Route: 042
     Dates: start: 20110702, end: 20110710
  17. ACETAMINOPHEN [Suspect]
     Dosage: 4 G, DAILY
     Route: 048
     Dates: end: 20110621
  18. ASPIRIN [Suspect]
     Dosage: 75 MG, DAILY
     Route: 048
     Dates: start: 20110625, end: 20110705
  19. CETIRIZINE [Concomitant]
     Dosage: UNK
     Route: 048
     Dates: start: 20110702, end: 20110705
  20. OLMESARTAN MEDOXOMIL [Suspect]
     Dosage: 20 MG, DAILY
     Route: 048
     Dates: start: 20110625, end: 20110712

REACTIONS (5)
  - NEUTROPENIA [None]
  - TOXICITY TO VARIOUS AGENTS [None]
  - RASH [None]
  - DRUG RASH WITH EOSINOPHILIA AND SYSTEMIC SYMPTOMS [None]
  - LIVER INJURY [None]
